FAERS Safety Report 23822760 (Version 1)
Quarter: 2024Q2

REPORT INFORMATION
  Report Type: Spontaneous
  Country: FR (occurrence: FR)
  Receive Date: 20240506
  Receipt Date: 20240506
  Transmission Date: 20240715
  Serious: Yes (Other)
  Sender: FDA-Public Use
  Company Number: None

PATIENT
  Age: 3 Year
  Sex: Female
  Weight: 12.3 kg

DRUGS (6)
  1. DEXMEDETOMIDINE [Suspect]
     Active Substance: DEXMEDETOMIDINE
     Indication: Sedation
     Dosage: DEXMEDETOMIDINE HYDROCHLORIDE
     Route: 042
     Dates: start: 20240318, end: 20240401
  2. HEPARIN [Suspect]
     Active Substance: HEPARIN SODIUM
     Indication: Anticoagulant therapy
     Dosage: 4 IU/KG/H
     Route: 042
     Dates: start: 20240324, end: 202404
  3. FUROSEMIDE [Suspect]
     Active Substance: FUROSEMIDE
     Indication: Diuretic therapy
     Route: 042
     Dates: start: 20240325, end: 202404
  4. BACTRIM [Suspect]
     Active Substance: SULFAMETHOXAZOLE\TRIMETHOPRIM
     Indication: Antibiotic prophylaxis
     Dosage: NR,BACTRIM, SOLUTION FOR INJECTION FOR INFUSION
     Route: 042
     Dates: start: 20240322, end: 202404
  5. KETAMINE [Suspect]
     Active Substance: KETAMINE
     Indication: Sedation
     Route: 042
     Dates: start: 20240322, end: 20240402
  6. VALGANCICLOVIR HYDROCHLORIDE [Suspect]
     Active Substance: VALGANCICLOVIR HYDROCHLORIDE
     Indication: Antibiotic prophylaxis
     Dosage: NR
     Route: 042
     Dates: start: 20240322, end: 202404

REACTIONS (1)
  - Cholestasis [Unknown]

NARRATIVE: CASE EVENT DATE: 20240326
